FAERS Safety Report 9275587 (Version 1)
Quarter: 2013Q2

REPORT INFORMATION
  Report Type: Spontaneous
  Country: US (occurrence: US)
  Receive Date: 20130507
  Receipt Date: 20130507
  Transmission Date: 20140414
  Serious: Yes (Other)
  Sender: FDA-Public Use
  Company Number: PHHY2013US043735

PATIENT
  Age: 61 Year
  Sex: Female

DRUGS (2)
  1. PACLITAXEL [Suspect]
     Indication: BREAST CANCER METASTATIC
  2. BEVACIZUMAB [Concomitant]

REACTIONS (5)
  - Cystoid macular oedema [Recovering/Resolving]
  - Retinal cyst [Unknown]
  - Vision blurred [Recovering/Resolving]
  - Maculopathy [Recovering/Resolving]
  - Dry eye [Recovering/Resolving]
